FAERS Safety Report 7319549-7 (Version None)
Quarter: 2011Q1

REPORT INFORMATION
  Report Type: 
  Country: None (occurrence: None)
  Receive Date: 20110228
  Receipt Date: 20100517
  Transmission Date: 20110831
  Serious: Yes (Other)
  Sender: FDA-Public Use
  Company Number: A0860015A

PATIENT
  Age: 37 Year
  Sex: Female

DRUGS (5)
  1. LAMOTRIGINE [Suspect]
     Dosage: 325MG TWICE PER DAY
     Route: 048
     Dates: start: 20050101
  2. ZONEGRAN [Concomitant]
  3. KEPPRA [Concomitant]
  4. UNKNOWN ANTIDEPRESSANT [Concomitant]
  5. LEVOXYL [Concomitant]

REACTIONS (1)
  - CONVULSION [None]
